FAERS Safety Report 5546854-7 (Version None)
Quarter: 2007Q4

REPORT INFORMATION
  Report Type: 
  Country: None (occurrence: None)
  Receive Date: 20071211
  Receipt Date: 20071130
  Transmission Date: 20080405
  Serious: Yes (Other)
  Sender: FDA-Public Use
  Company Number: JP-PFIZER INC-2007102427

PATIENT
  Age: 64 Year
  Sex: Female

DRUGS (1)
  1. LIPITOR [Suspect]
     Indication: HYPERLIPIDAEMIA
     Route: 048
     Dates: start: 20071121, end: 20071123

REACTIONS (1)
  - OCULOMUCOCUTANEOUS SYNDROME [None]
